FAERS Safety Report 7347233-2 (Version None)
Quarter: 2011Q1

REPORT INFORMATION
  Report Type: 
  Country: None (occurrence: None)
  Receive Date: 20110303
  Receipt Date: 20110215
  Transmission Date: 20110831
  Serious: Yes (Hospitalization)
  Sender: FDA-Public Use
  Company Number: JPI-P-013937

PATIENT
  Age: 54 Year
  Sex: Male

DRUGS (6)
  1. XYREM [Suspect]
     Indication: FATIGUE
     Dosage: 6 GM (3 GM, 2 IN 1 D), ORAL; ORAL; 9 GM (4.5 GM, 2 IN 1 D), ORAL
     Route: 048
     Dates: start: 20030728
  2. XYREM [Suspect]
     Indication: SLEEP DISORDER
     Dosage: 6 GM (3 GM, 2 IN 1 D), ORAL; ORAL; 9 GM (4.5 GM, 2 IN 1 D), ORAL
     Route: 048
     Dates: start: 20030728
  3. XYREM [Suspect]
     Indication: FIBROMYALGIA
     Dosage: 6 GM (3 GM, 2 IN 1 D), ORAL; ORAL; 9 GM (4.5 GM, 2 IN 1 D), ORAL
     Route: 048
     Dates: start: 20030728
  4. XYREM [Suspect]
     Indication: FATIGUE
     Dosage: 6 GM (3 GM, 2 IN 1 D), ORAL; ORAL; 9 GM (4.5 GM, 2 IN 1 D), ORAL
     Route: 048
     Dates: start: 20090105
  5. XYREM [Suspect]
     Indication: SLEEP DISORDER
     Dosage: 6 GM (3 GM, 2 IN 1 D), ORAL; ORAL; 9 GM (4.5 GM, 2 IN 1 D), ORAL
     Route: 048
     Dates: start: 20090105
  6. XYREM [Suspect]
     Indication: FIBROMYALGIA
     Dosage: 6 GM (3 GM, 2 IN 1 D), ORAL; ORAL; 9 GM (4.5 GM, 2 IN 1 D), ORAL
     Route: 048
     Dates: start: 20090105

REACTIONS (10)
  - FOOD INTOLERANCE [None]
  - VOMITING [None]
  - INITIAL INSOMNIA [None]
  - DIARRHOEA [None]
  - FIBROMYALGIA [None]
  - STRESS [None]
  - PAIN IN EXTREMITY [None]
  - NAUSEA [None]
  - CONDITION AGGRAVATED [None]
  - ORAL FUNGAL INFECTION [None]
